FAERS Safety Report 7178932-3 (Version None)
Quarter: 2010Q4

REPORT INFORMATION
  Report Type: 
  Country: None (occurrence: None)
  Receive Date: 20101217
  Receipt Date: 20101217
  Transmission Date: 20110411
  Serious: Yes (Other)
  Sender: FDA-Public Use
  Company Number: None

PATIENT
  Sex: Female
  Weight: 56.6996 kg

DRUGS (2)
  1. FENTANYL CITRATE [Suspect]
     Indication: BACK PAIN
     Dosage: APPLY 1 PATCH EVERY 72 HOURS
     Dates: start: 20100501, end: 20101015
  2. FENTANYL CITRATE [Suspect]
     Indication: BACK PAIN
     Dosage: APPLY 1 PATCH EVERY 72 HOURS
     Dates: start: 20101016, end: 20101122

REACTIONS (3)
  - CONDITION AGGRAVATED [None]
  - PAIN [None]
  - PRODUCT SUBSTITUTION ISSUE [None]
